FAERS Safety Report 11227920 (Version 2)
Quarter: 2016Q4

REPORT INFORMATION
  Report Type: Report from Study
  Country: KR (occurrence: KR)
  Receive Date: 20150630
  Receipt Date: 20161012
  Transmission Date: 20170206
  Serious: Yes (Death, Hospitalization, Other)
  Sender: FDA-Public Use
  Company Number: KR-OTSUKA-JP-2014-11968

PATIENT
  Age: 78 Year
  Sex: Male

DRUGS (13)
  1. CILOSTAZOL. [Suspect]
     Active Substance: CILOSTAZOL
     Indication: ARTERIAL OCCLUSIVE DISEASE
     Dosage: 200 MG, QD
     Route: 048
     Dates: start: 20140213, end: 20140217
  2. SEROQUEL [Concomitant]
     Active Substance: QUETIAPINE FUMARATE
     Indication: ARTERIAL OCCLUSIVE DISEASE
     Dosage: 150 MG, QD
     Route: 048
     Dates: start: 20140213, end: 20140217
  3. PLETAAL [Suspect]
     Active Substance: CILOSTAZOL
     Indication: ARTERIAL OCCLUSIVE DISEASE
     Dosage: 200 MG, UNK
     Route: 048
     Dates: start: 20140213, end: 20140217
  4. PLETAAL [Suspect]
     Active Substance: CILOSTAZOL
     Dosage: UNK
     Route: 048
     Dates: start: 20140221, end: 20140318
  5. SERMION [Concomitant]
     Active Substance: NICERGOLINE
     Indication: ARTERIAL OCCLUSIVE DISEASE
     Dosage: 30 MG, QD
     Route: 048
     Dates: start: 20140213, end: 20140217
  6. ARICEPT [Concomitant]
     Active Substance: DONEPEZIL HYDROCHLORIDE
     Indication: ARTERIAL OCCLUSIVE DISEASE
     Dosage: 10 MG, QD
     Route: 048
     Dates: start: 20140213, end: 20140217
  7. RHINATHIOL-A [Concomitant]
     Indication: PROPHYLAXIS
     Dosage: 375 MG, QD
     Route: 048
     Dates: start: 20140213, end: 20140217
  8. CILOSTAZOL. [Suspect]
     Active Substance: CILOSTAZOL
     Dosage: UNK
     Route: 048
     Dates: start: 20140221, end: 20140318
  9. ASPIRIN PROTECT [Concomitant]
     Active Substance: ASPIRIN
     Indication: PROPHYLAXIS
     Dosage: 100 MG, QD
     Route: 048
     Dates: start: 20140213, end: 20140217
  10. DILATREND [Concomitant]
     Active Substance: CARVEDILOL
     Indication: ARTERIAL OCCLUSIVE DISEASE
     Dosage: 6.25 MG, QD
     Route: 048
     Dates: start: 20140213, end: 20140217
  11. RISPERDAL [Concomitant]
     Active Substance: RISPERIDONE
     Indication: ARTERIAL OCCLUSIVE DISEASE
     Dosage: 1 MG, QD
     Route: 048
     Dates: start: 20140213, end: 20140217
  12. ULGUT [Concomitant]
     Indication: PROPHYLAXIS
     Dosage: 200 MG, QD
     Route: 048
     Dates: start: 20140213, end: 20140217
  13. RIVOTRIL [Concomitant]
     Active Substance: CLONAZEPAM
     Indication: ARTERIAL OCCLUSIVE DISEASE
     Dosage: 0.5 MG, QD
     Route: 048
     Dates: start: 20140213, end: 20140217

REACTIONS (2)
  - Shock [Fatal]
  - Pulmonary embolism [Recovered/Resolved]

NARRATIVE: CASE EVENT DATE: 20140217
